FAERS Safety Report 4431154-9 (Version None)
Quarter: 2004Q3

REPORT INFORMATION
  Report Type: 
  Country: None (occurrence: None)
  Receive Date: 20040818
  Receipt Date: 20040804
  Transmission Date: 20050211
  Serious: Yes (Life-Threatening, Other)
  Sender: FDA-Public Use
  Company Number: 2004-BP-05429BP

PATIENT
  Age: 58 Year
  Sex: Female

DRUGS (6)
  1. CATAPRES-TTS-3 [Suspect]
     Indication: HYPERTENSION
     Dosage: SEE IMAGE
     Route: 061
     Dates: start: 20040301, end: 20040401
  2. CATAPRES-TTS-3 [Suspect]
     Indication: HYPERTENSION
     Dosage: SEE IMAGE
     Route: 061
     Dates: start: 20040401, end: 20040501
  3. CATAPRES-TTS-3 [Suspect]
     Indication: HYPERTENSION
     Dosage: SEE IMAGE
     Route: 061
     Dates: start: 20040501, end: 20040530
  4. SYNTHROID [Concomitant]
  5. LOTREL (LOTREL) [Concomitant]
  6. CLIMARA [Concomitant]

REACTIONS (5)
  - APPLICATION SITE PRURITUS [None]
  - BLOOD PRESSURE INCREASED [None]
  - INSOMNIA [None]
  - PALPITATIONS [None]
  - SWELLING [None]
